FAERS Safety Report 23816322 (Version 1)
Quarter: 2024Q2

REPORT INFORMATION
  Report Type: Spontaneous
  Country: IT (occurrence: IT)
  Receive Date: 20240503
  Receipt Date: 20240503
  Transmission Date: 20240716
  Serious: Yes (Hospitalization)
  Sender: FDA-Public Use
  Company Number: None

PATIENT
  Age: 47 Year
  Sex: Male

DRUGS (4)
  1. IBUPROFEN [Suspect]
     Active Substance: IBUPROFEN
     Indication: Product used for unknown indication
     Dosage: 600 MILLIGRAM, TOTAL (BRUFEN 600 MG)
     Route: 048
     Dates: start: 20231018, end: 20231018
  2. AUGMENTIN [Suspect]
     Active Substance: AMOXICILLIN\CLAVULANATE POTASSIUM
     Indication: Product used for unknown indication
     Dosage: UNK
     Route: 048
     Dates: start: 20231018, end: 20231018
  3. NIMESULIDE [Concomitant]
     Active Substance: NIMESULIDE
     Dosage: THE PATIENT TOOK AULIN ON THE AFTERNOON OF THE DAY THE PATIENT EXPERIENCED THE ADVERSE REACTION
     Route: 048
  4. IBUPROFEN [Concomitant]
     Active Substance: IBUPROFEN
     Dosage: THE PATIENT TOOK MOMENTACT ON THE MORNING OF THE DAY THE PATIENT MANIFESTED THE ADVERSE REACTION
     Route: 048
     Dates: start: 20231018, end: 20231018

REACTIONS (5)
  - Pruritus [Recovered/Resolved]
  - Tongue oedema [Recovered/Resolved]
  - Face oedema [Recovered/Resolved]
  - Dyspnoea [Recovered/Resolved]
  - White blood cell count increased [Unknown]

NARRATIVE: CASE EVENT DATE: 20231018
